FAERS Safety Report 25516614 (Version 1)
Quarter: 2025Q3

REPORT INFORMATION
  Report Type: Spontaneous
  Country: US (occurrence: US)
  Receive Date: 20250704
  Receipt Date: 20250704
  Transmission Date: 20251020
  Serious: No
  Sender: RADIUS PHARM
  Company Number: US-RADIUS HEALTH INC.-2025US002406

PATIENT
  Age: 41 Year
  Sex: Female

DRUGS (1)
  1. TYMLOS [Suspect]
     Active Substance: ABALOPARATIDE
     Indication: Osteoporosis
     Route: 058
     Dates: start: 20250306

REACTIONS (10)
  - Memory impairment [Unknown]
  - Dizziness [Unknown]
  - Tachycardia [Unknown]
  - Headache [Unknown]
  - Migraine [Unknown]
  - Photophobia [Unknown]
  - Fatigue [Unknown]
  - Arthralgia [Unknown]
  - Brain fog [Unknown]
  - Mental status changes [Unknown]

NARRATIVE: CASE EVENT DATE: 20250301
